FAERS Safety Report 7235038-2 (Version None)
Quarter: 2011Q1

REPORT INFORMATION
  Report Type: 
  Country: None (occurrence: None)
  Receive Date: 20110120
  Receipt Date: 20110112
  Transmission Date: 20110831
  Serious: Yes (Hospitalization)
  Sender: FDA-Public Use
  Company Number: US-US-EMD SERONO, INC.-7001931

PATIENT
  Sex: Female
  Weight: 86 kg

DRUGS (5)
  1. LISINOPRIL [Concomitant]
     Dates: start: 20090914
  2. TYLENOL W/ CODEINE NO. 3 [Concomitant]
     Indication: PAIN
     Dates: start: 20081023
  3. REBIF [Suspect]
     Indication: MULTIPLE SCLEROSIS
     Route: 058
     Dates: start: 20081023
  4. STEROIDS [Suspect]
     Indication: MULTIPLE SCLEROSIS RELAPSE
     Route: 048
     Dates: start: 20100401
  5. STEROIDS [Suspect]
     Indication: OPTIC NEURITIS
     Route: 042
     Dates: start: 20100401, end: 20100401

REACTIONS (5)
  - MIGRAINE [None]
  - OPTIC NEURITIS [None]
  - MULTIPLE SCLEROSIS RELAPSE [None]
  - EXOSTOSIS [None]
  - TYPE 1 DIABETES MELLITUS [None]
